FAERS Safety Report 5841780-8 (Version None)
Quarter: 2008Q3

REPORT INFORMATION
  Report Type: 
  Country: None (occurrence: None)
  Receive Date: 20080811
  Receipt Date: 20080811
  Transmission Date: 20090109
  Serious: No
  Sender: FDA-Public Use
  Company Number: None

PATIENT
  Age: 40 Year
  Sex: Female
  Weight: 107.9561 kg

DRUGS (1)
  1. TYSABRI [Suspect]

REACTIONS (3)
  - MASS [None]
  - PAIN [None]
  - URTICARIA [None]
